FAERS Safety Report 20804590 (Version 2)
Quarter: 2022Q2

REPORT INFORMATION
  Report Type: Report from Study
  Country: US (occurrence: US)
  Receive Date: 20220509
  Receipt Date: 20220511
  Transmission Date: 20220721
  Serious: Yes (Hospitalization)
  Sender: FDA-Public Use
  Company Number: US-JAZZ-2022-US-013670

PATIENT
  Sex: Female

DRUGS (2)
  1. SUNOSI [Suspect]
     Active Substance: SOLRIAMFETOL
     Indication: Hypersomnia
  2. XYWAV [Suspect]
     Active Substance: CALCIUM OXYBATE\MAGNESIUM OXYBATE\POTASSIUM OXYBATE\SODIUM OXYBATE
     Indication: Product used for unknown indication

REACTIONS (9)
  - Oxygen saturation decreased [Unknown]
  - Pain [Unknown]
  - Depression [Unknown]
  - Asthma [Unknown]
  - Memory impairment [Unknown]
  - Nasal injury [Unknown]
  - Restless legs syndrome [Unknown]
  - Anxiety [Unknown]
  - Cough [Unknown]
